FAERS Safety Report 5386827-0 (Version None)
Quarter: 2007Q3

REPORT INFORMATION
  Report Type: 
  Country: None (occurrence: None)
  Receive Date: 20070713
  Receipt Date: 20070702
  Transmission Date: 20080115
  Serious: Yes (Hospitalization, Other)
  Sender: FDA-Public Use
  Company Number: US-PFIZER INC-2007034453

PATIENT
  Sex: Female
  Weight: 71.7 kg

DRUGS (2)
  1. GEODON [Suspect]
     Indication: INTERMITTENT EXPLOSIVE DISORDER
     Dosage: DAILY DOSE:160MG
  2. EFFEXOR XR [Suspect]
     Indication: DEPRESSION
     Dosage: DAILY DOSE:150MG
     Dates: start: 20060901

REACTIONS (5)
  - CONVULSION [None]
  - DYSKINESIA [None]
  - FEELING ABNORMAL [None]
  - LOSS OF CONSCIOUSNESS [None]
  - PHOTOPSIA [None]
